FAERS Safety Report 5580120-9 (Version None)
Quarter: 2008Q1

REPORT INFORMATION
  Report Type: 
  Country: None (occurrence: None)
  Receive Date: 20080103
  Receipt Date: 20071221
  Transmission Date: 20080703
  Serious: Yes (Other)
  Sender: FDA-Public Use
  Company Number: JP-NOVOPROD-270596

PATIENT
  Age: 7 Year
  Sex: Female
  Weight: 28 kg

DRUGS (6)
  1. NOVOLIN R [Suspect]
     Indication: TYPE 1 DIABETES MELLITUS
     Dates: start: 20030514
  2. NOVOLIN N [Suspect]
     Indication: TYPE 1 DIABETES MELLITUS
     Dates: start: 20030514, end: 20031205
  3. NOVOLIN 30R CHU [Suspect]
     Indication: TYPE 1 DIABETES MELLITUS
     Dates: end: 20050615
  4. NOVORAPID 30 MIX CHU [Suspect]
     Indication: TYPE 1 DIABETES MELLITUS
     Dates: start: 20050713
  5. NOVORAPID CHU [Suspect]
     Indication: TYPE 1 DIABETES MELLITUS
     Dates: start: 20051206
  6. LANTUS [Concomitant]
     Route: 058
     Dates: start: 20051206

REACTIONS (3)
  - ANTI-INSULIN ANTIBODY [None]
  - HYPERGLYCAEMIA [None]
  - HYPOGLYCAEMIA [None]
